FAERS Safety Report 12720827 (Version 2)
Quarter: 2017Q4

REPORT INFORMATION
  Report Type: Report from Study
  Country: CA (occurrence: CA)
  Receive Date: 20160907
  Receipt Date: 20171019
  Transmission Date: 20180320
  Serious: Yes (Hospitalization)
  Sender: FDA-Public Use
  Company Number: CA-AMGEN-CANSL2016116269

PATIENT
  Age: 85 Year
  Sex: Female

DRUGS (1)
  1. PROLIA [Suspect]
     Active Substance: DENOSUMAB
     Indication: OSTEOPOROSIS POSTMENOPAUSAL
     Dosage: 60 MG/ML, UNK
     Route: 065
     Dates: start: 20150305

REACTIONS (5)
  - Pain [Recovering/Resolving]
  - Sleep disorder due to a general medical condition [Unknown]
  - Mobility decreased [Unknown]
  - Pain in extremity [Recovering/Resolving]
  - Drug ineffective [Unknown]

NARRATIVE: CASE EVENT DATE: 2015
